FAERS Safety Report 9494007 (Version 1)
Quarter: 2013Q3

REPORT INFORMATION
  Report Type: Spontaneous
  Country: US (occurrence: US)
  Receive Date: 20130903
  Receipt Date: 20130903
  Transmission Date: 20140515
  Serious: Yes (Other)
  Sender: FDA-Public Use
  Company Number: US-BRISTOL-MYERS SQUIBB COMPANY-19235050

PATIENT
  Age: 69 Year
  Sex: Female
  Weight: 108.84 kg

DRUGS (2)
  1. BYETTA [Suspect]
     Indication: TYPE 2 DIABETES MELLITUS
  2. COUMADIN [Suspect]

REACTIONS (2)
  - Thrombosis [Recovered/Resolved]
  - Amnesia [Unknown]
